FAERS Safety Report 7511393-0 (Version None)
Quarter: 2011Q2

REPORT INFORMATION
  Report Type: 
  Country: None (occurrence: None)
  Receive Date: 20110531
  Receipt Date: 20101227
  Transmission Date: 20111010
  Serious: Yes (Hospitalization, Other)
  Sender: FDA-Public Use
  Company Number: US-BAYER-201013433NA

PATIENT
  Age: 22 Year
  Sex: Female
  Weight: 60.317 kg

DRUGS (6)
  1. MULTI-VITAMIN [Concomitant]
     Indication: SUPPLEMENTATION THERAPY
     Route: 048
  2. CYMBALTA [Concomitant]
     Indication: ANXIETY
     Dosage: 30 MG, QD
     Route: 048
  3. YASMIN [Suspect]
     Indication: CONTRACEPTION
     Dosage: UNK
     Route: 048
     Dates: start: 20051201, end: 20090501
  4. DROSPIRENONE AND ETHINYL ESTRADIOL [Suspect]
     Indication: CONTRACEPTION
     Dosage: UNK
     Dates: start: 20090501, end: 20100101
  5. ROBINUL [Concomitant]
     Indication: NIGHT SWEATS
     Dosage: 30 MG, QD
     Route: 048
  6. CYMBALTA [Concomitant]
     Indication: DEPRESSION

REACTIONS (3)
  - CHOLELITHIASIS [None]
  - BILIARY COLIC [None]
  - CHOLECYSTITIS CHRONIC [None]
